FAERS Safety Report 25526746 (Version 1)
Quarter: 2025Q3

REPORT INFORMATION
  Report Type: Spontaneous
  Country: US (occurrence: US)
  Receive Date: 20250707
  Receipt Date: 20250707
  Transmission Date: 20251021
  Serious: Yes (Death, Other)
  Sender: PURDUE
  Company Number: US-PURDUE PHARMA-USA-2025-0318684

PATIENT
  Sex: Male

DRUGS (4)
  1. HYDROMORPHONE [Suspect]
     Active Substance: HYDROMORPHONE
     Indication: Pain
     Dosage: EVERY THREE HOURS
     Route: 048
     Dates: start: 20190724
  2. MORPHINE SULFATE [Suspect]
     Active Substance: MORPHINE SULFATE
     Indication: Pain
     Route: 065
     Dates: start: 20190707
  3. FENTANYL [Suspect]
     Active Substance: FENTANYL
     Indication: Pain
     Route: 062
     Dates: start: 20190722
  4. FENTANYL [Suspect]
     Active Substance: FENTANYL
     Route: 062
     Dates: start: 20190725

REACTIONS (1)
  - Death [Fatal]

NARRATIVE: CASE EVENT DATE: 20190806
